FAERS Safety Report 4717201-5 (Version None)
Quarter: 2005Q3

REPORT INFORMATION
  Report Type: 
  Country: None (occurrence: None)
  Receive Date: 20050712
  Receipt Date: 20050315
  Transmission Date: 20060218
  Serious: Yes (Hospitalization, Other)
  Sender: FDA-Public Use
  Company Number: 2005045677

PATIENT
  Age: 59 Year
  Sex: Female
  Weight: 90.7194 kg

DRUGS (7)
  1. ACCUPRIL [Suspect]
     Indication: BLOOD PRESSURE
     Dosage: 40 MG (40 MG, QD INTERVAL: EVERY DAY)
     Dates: start: 20040101
  2. CITALOPRAM HYDROBROMIDE [Concomitant]
  3. FUROSEMIDE [Concomitant]
  4. INSULIN [Concomitant]
  5. ROSUVASTATIN [Concomitant]
  6. METOPROLOL SUCCINATE [Concomitant]
  7. ESOMEPRAZOLE [Concomitant]

REACTIONS (3)
  - CEREBROVASCULAR ACCIDENT [None]
  - MEMORY IMPAIRMENT [None]
  - MENTAL IMPAIRMENT [None]
